FAERS Safety Report 5220053-0 (Version None)
Quarter: 2007Q1

REPORT INFORMATION
  Report Type: 
  Country: None (occurrence: None)
  Receive Date: 20070125
  Receipt Date: 20070117
  Transmission Date: 20070707
  Serious: Yes (Hospitalization, Disabling)
  Sender: FDA-Public Use
  Company Number: US-MERCK-0612USA03554

PATIENT
  Age: 65 Year
  Sex: Male
  Weight: 78 kg

DRUGS (18)
  1. JANUVIA [Suspect]
     Indication: DIABETES MELLITUS NON-INSULIN-DEPENDENT
     Route: 048
     Dates: start: 20061215, end: 20061217
  2. NEURONTIN [Concomitant]
     Route: 065
  3. ATIVAN [Concomitant]
     Route: 065
  4. TORSEMIDE [Concomitant]
     Route: 065
  5. ALTACE [Concomitant]
     Route: 065
  6. PLAVIX [Concomitant]
     Route: 065
  7. ZETIA [Concomitant]
     Route: 048
  8. ZYRTEC [Concomitant]
     Route: 065
  9. PROTONIX [Concomitant]
     Route: 065
  10. FLOMAX [Concomitant]
     Route: 065
  11. FLONASE [Concomitant]
     Route: 065
  12. GLIPIZIDE [Concomitant]
     Route: 065
  13. METFORMIN [Concomitant]
     Route: 065
  14. ALDACTONE [Concomitant]
     Route: 065
  15. ATARAX [Concomitant]
     Route: 065
  16. TEMAZEPAM [Concomitant]
     Route: 065
  17. TOPROL-XL [Concomitant]
     Route: 065
  18. VITAMINS (UNSPECIFIED) [Concomitant]
     Route: 065

REACTIONS (9)
  - ARTHRALGIA [None]
  - BRONCHITIS [None]
  - BRONCHOSPASM [None]
  - DYSURIA [None]
  - FEELING COLD [None]
  - HYPERGLYCAEMIA [None]
  - MYALGIA [None]
  - PAIN IN EXTREMITY [None]
  - RASH [None]
